FAERS Safety Report 4445034-6 (Version None)
Quarter: 2004Q3

REPORT INFORMATION
  Report Type: 
  Country: None (occurrence: None)
  Receive Date: 20040903
  Receipt Date: 20040820
  Transmission Date: 20050211
  Serious: Yes (Other)
  Sender: FDA-Public Use
  Company Number: 208681

PATIENT
  Age: 39 Year
  Sex: Male
  Weight: 59 kg

DRUGS (13)
  1. RITUXIMAB (RITUXIMAB) CONC FOR SOLUTION FOR INFUSION [Suspect]
     Indication: CENTRAL NERVOUS SYSTEM LYMPHOMA
     Dosage: 50 MG, SINGLE, INTRATHECAL
     Route: 037
     Dates: start: 20040802, end: 20040802
  2. RITUXIMAB(RITUXIMAB) CONC FOR SOLUTION FOR INFUSION [Suspect]
     Indication: CENTRAL NERVOUS SYSTEM LYMPHOMA
     Dosage: 50 MG, SINGLE, INTRATHECAL
     Route: 037
     Dates: start: 20040802, end: 20040802
  3. CLONIDINE HCL [Concomitant]
  4. DECADRON [Concomitant]
  5. PROTONIX [Concomitant]
  6. G-CSF (FILGRASTIM) [Concomitant]
  7. GLIPIZIDE [Concomitant]
  8. CASPOFUNGIN (CASPOFUNGIN ACETATE) [Concomitant]
  9. VORICONAZOLE [Concomitant]
  10. NORVASC [Concomitant]
  11. COLACE (DOCUSATE SODIUM) [Concomitant]
  12. CALCIUM ACETATE [Concomitant]
  13. OXYGEN PER NASAL CANNULA (OXYGEN) [Concomitant]

REACTIONS (7)
  - CHEST DISCOMFORT [None]
  - DEFAECATION URGENCY [None]
  - HEART RATE INCREASED [None]
  - HYPERTENSION [None]
  - OXYGEN SATURATION DECREASED [None]
  - PARAESTHESIA [None]
  - TACHYPNOEA [None]
